FAERS Safety Report 17573213 (Version 1)
Quarter: 2020Q1

REPORT INFORMATION
  Report Type: Spontaneous
  Country: CN (occurrence: CN)
  Receive Date: 20200323
  Receipt Date: 20200323
  Transmission Date: 20200409
  Serious: Yes (Other)
  Sender: FDA-Public Use
  Company Number: CN-US-PROVELL PHARMACEUTICALS LLC-E2B_90075787

PATIENT
  Sex: Male

DRUGS (4)
  1. THYROZOL [Suspect]
     Active Substance: METHIMAZOLE
     Indication: HYPERTHYROIDISM
     Dosage: THERAPY START DATE: JAN 2020
     Route: 048
     Dates: end: 202002
  2. THYROZOL [Suspect]
     Active Substance: METHIMAZOLE
     Dosage: THERAPY START DATE: FEB 2020 (DOSE REDUCED)
     Route: 048
     Dates: end: 20200303
  3. EUTHYROX [Suspect]
     Active Substance: LEVOTHYROXINE SODIUM
     Indication: HYPOTHYROIDISM
     Route: 048
     Dates: start: 201812, end: 201911
  4. THYROZOL [Suspect]
     Active Substance: METHIMAZOLE
     Dosage: THERAPY START DATE: 02 FEB 2020 (DOSE INCREASED)
     Route: 048
     Dates: end: 202002

REACTIONS (3)
  - Hypothyroidism [Unknown]
  - Intentional product use issue [Unknown]
  - Hyperthyroidism [Recovered/Resolved]

NARRATIVE: CASE EVENT DATE: 201911
